FAERS Safety Report 10220713 (Version 2)
Quarter: 2014Q3

REPORT INFORMATION
  Report Type: Spontaneous
  Country: CN (occurrence: None)
  Receive Date: 20140604
  Receipt Date: 20140707
  Transmission Date: 20150326
  Serious: Yes (Other)
  Sender: FDA-Public Use
  Company Number: UNT-2014-001175

PATIENT
  Age: 17 Year
  Sex: Male
  Weight: 65 kg

DRUGS (4)
  1. TADALAFIL (TADALAFIL) [Concomitant]
  2. VENTAVIS (ILOPROST TROMETAMOL) [Concomitant]
  3. REMODULIN [Suspect]
     Active Substance: TREPROSTINIL
     Indication: PULMONARY ARTERIAL HYPERTENSION
     Route: 058
     Dates: start: 20140516, end: 20140622
  4. AMBRISENTAN (AIMRISENTAN) [Concomitant]

REACTIONS (6)
  - Pulmonary oedema [None]
  - Diarrhoea [None]
  - Infusion site erythema [None]
  - Oedema genital [None]
  - Hypotension [None]
  - Sputum increased [None]

NARRATIVE: CASE EVENT DATE: 20140519
